FAERS Safety Report 18807198 (Version 1)
Quarter: 2021Q1

REPORT INFORMATION
  Report Type: Spontaneous
  Country: CA (occurrence: CA)
  Receive Date: 20210128
  Receipt Date: 20210128
  Transmission Date: 20210419
  Serious: Yes (Hospitalization)
  Sender: FDA-Public Use
  Company Number: CA-TEVA-2021-CA-1872982

PATIENT
  Age: 60 Year
  Sex: Male

DRUGS (1)
  1. RIZATRIPTAN. [Suspect]
     Active Substance: RIZATRIPTAN
     Indication: MIGRAINE
     Route: 048

REACTIONS (3)
  - Chest pain [Unknown]
  - Dizziness [Unknown]
  - Supraventricular tachycardia [Unknown]
